FAERS Safety Report 8482823 (Version 4)
Quarter: 2016Q3

REPORT INFORMATION
  Report Type: Spontaneous
  Country: US (occurrence: US)
  Receive Date: 20120329
  Receipt Date: 20160805
  Transmission Date: 20161109
  Serious: Yes (Hospitalization, Disabling, Other)
  Sender: FDA-Public Use
  Company Number: US-009507513-1203USA03485

PATIENT
  Sex: Female
  Weight: 54.42 kg

DRUGS (21)
  1. COLACE [Concomitant]
     Active Substance: DOCUSATE SODIUM
     Indication: PRODUCT USED FOR UNKNOWN INDICATION
     Dosage: 100 MG, BID
     Route: 048
  2. VITAMINS (UNSPECIFIED) [Concomitant]
     Active Substance: VITAMINS
     Indication: PRODUCT USED FOR UNKNOWN INDICATION
     Route: 065
  3. FOSAMAX PLUS D [Suspect]
     Active Substance: ALENDRONATE SODIUM\CHOLECALCIFEROL
     Indication: OSTEOPOROSIS
  4. ALENDRONATE SODIUM. [Suspect]
     Active Substance: ALENDRONATE SODIUM
     Indication: OSTEOPOROSIS
  5. ULTRAM [Concomitant]
     Active Substance: TRAMADOL HYDROCHLORIDE
     Indication: PRODUCT USED FOR UNKNOWN INDICATION
     Route: 065
  6. FERROUS SULFATE. [Concomitant]
     Active Substance: FERROUS SULFATE
     Indication: PRODUCT USED FOR UNKNOWN INDICATION
     Route: 065
  7. ALENDRONATE SODIUM. [Suspect]
     Active Substance: ALENDRONATE SODIUM
     Indication: OSTEOPENIA
     Dosage: 70 MG, QW
     Route: 048
     Dates: start: 20090121, end: 20101129
  8. PROTONIX [Concomitant]
     Active Substance: PANTOPRAZOLE SODIUM
     Indication: PRODUCT USED FOR UNKNOWN INDICATION
     Route: 065
  9. OXYCONTIN [Concomitant]
     Active Substance: OXYCODONE HYDROCHLORIDE
     Indication: PRODUCT USED FOR UNKNOWN INDICATION
     Dosage: 10 MG, UNK
     Route: 048
  10. REQUIP [Concomitant]
     Active Substance: ROPINIROLE HYDROCHLORIDE
     Indication: PRODUCT USED FOR UNKNOWN INDICATION
     Dosage: 25 MG, HS
     Route: 065
  11. HYDROCODONE [Concomitant]
     Active Substance: HYDROCODONE
     Indication: PRODUCT USED FOR UNKNOWN INDICATION
     Route: 065
  12. CALCIUM (UNSPECIFIED) [Concomitant]
     Active Substance: CALCIUM
     Indication: PRODUCT USED FOR UNKNOWN INDICATION
     Route: 065
  13. MK-9278 [Concomitant]
     Active Substance: VITAMINS
     Indication: PRODUCT USED FOR UNKNOWN INDICATION
     Dosage: UNK
     Route: 048
  14. FOSAMAX [Suspect]
     Active Substance: ALENDRONATE SODIUM
     Indication: OSTEOPOROSIS
     Dosage: UNK
     Route: 048
     Dates: start: 200511, end: 200711
  15. FERROUS SULFATE (+) VITAMIN B COMPLEX [Concomitant]
     Indication: PRODUCT USED FOR UNKNOWN INDICATION
     Dosage: UNK, BID
     Route: 048
  16. FOSAMAX [Suspect]
     Active Substance: ALENDRONATE SODIUM
     Indication: OSTEOPENIA
     Dosage: UNK
     Route: 048
     Dates: start: 2000, end: 2010
  17. FOSAMAX PLUS D [Suspect]
     Active Substance: ALENDRONATE SODIUM\CHOLECALCIFEROL
     Indication: OSTEOPENIA
     Dosage: 70 MG/2800 IU, QW
     Route: 048
     Dates: start: 20051116, end: 20071106
  18. MOBIC [Concomitant]
     Active Substance: MELOXICAM
     Indication: PRODUCT USED FOR UNKNOWN INDICATION
     Route: 065
  19. MAGNESIUM OXIDE. [Concomitant]
     Active Substance: MAGNESIUM OXIDE
     Indication: PRODUCT USED FOR UNKNOWN INDICATION
     Dosage: 400 MG, BID
     Route: 048
  20. OS-CAL + D [Concomitant]
     Indication: PRODUCT USED FOR UNKNOWN INDICATION
     Dosage: 500 MG, BID
     Route: 048
  21. PULMICORT TURBUHALER [Concomitant]
     Active Substance: BUDESONIDE
     Indication: PRODUCT USED FOR UNKNOWN INDICATION
     Route: 065

REACTIONS (45)
  - Osteoarthritis [Unknown]
  - Bursitis [Unknown]
  - Tachycardia [Unknown]
  - Dyspnoea [Unknown]
  - Erythema [Unknown]
  - Headache [Unknown]
  - Basal cell carcinoma [Unknown]
  - Intramedullary rod insertion [Unknown]
  - Atrophic vulvovaginitis [Unknown]
  - Spinal osteoarthritis [Unknown]
  - Gastrooesophageal reflux disease [Unknown]
  - Hyperthyroidism [Unknown]
  - Granuloma [Unknown]
  - Bronchitis [Unknown]
  - Hypomagnesaemia [Unknown]
  - Neuralgia [Unknown]
  - Surgery [Unknown]
  - Squamous cell carcinoma [Unknown]
  - Bone density decreased [Unknown]
  - Weight decreased [Unknown]
  - Intervertebral disc protrusion [Unknown]
  - Stress fracture [Unknown]
  - Osteoporosis [Unknown]
  - Chronic obstructive pulmonary disease [Unknown]
  - Vitamin D decreased [Unknown]
  - Depression [Unknown]
  - Hyperlipidaemia [Unknown]
  - Coronary artery disease [Unknown]
  - Haemoglobin decreased [Unknown]
  - Restless legs syndrome [Unknown]
  - Cardiomyopathy [Unknown]
  - Anaemia [Unknown]
  - Cholecystectomy [Unknown]
  - Hypertension [Unknown]
  - Cardiac failure congestive [Unknown]
  - Haematocrit decreased [Unknown]
  - Femur fracture [Unknown]
  - Chest pain [Unknown]
  - Anxiety [Unknown]
  - Biopsy breast [Unknown]
  - Mitral valve prolapse [Unknown]
  - Herpes zoster [Unknown]
  - Hiatus hernia [Unknown]
  - Drug ineffective [Unknown]
  - Femur fracture [Unknown]

NARRATIVE: CASE EVENT DATE: 2006
